FAERS Safety Report 15767066 (Version 2)
Quarter: 2019Q1

REPORT INFORMATION
  Report Type: Report from Study
  Country: US (occurrence: US)
  Receive Date: 20181227
  Receipt Date: 20190125
  Transmission Date: 20190417
  Serious: Yes (Other)
  Sender: FDA-Public Use
  Company Number: PHEH2018US053979

PATIENT
  Sex: Male

DRUGS (1)
  1. ENTRESTO [Suspect]
     Active Substance: SACUBITRIL\VALSARTAN
     Indication: PRODUCT USED FOR UNKNOWN INDICATION
     Dosage: 51 MG, BID
     Route: 048

REACTIONS (4)
  - Weight decreased [Unknown]
  - Ejection fraction decreased [Recovering/Resolving]
  - Pain [Unknown]
  - Neck pain [Unknown]
